FAERS Safety Report 9252526 (Version 1)
Quarter: 2013Q1

REPORT INFORMATION
  Report Type: Spontaneous
  Country: US (occurrence: None)
  Receive Date: 20130305
  Receipt Date: 20130305
  Transmission Date: 20140127
  Serious: Yes (Other)
  Sender: FDA-Public Use
  Company Number: 163-21880-12091472 (0)

PATIENT
  Age: 71 Year
  Sex: Male

DRUGS (7)
  1. REVLIMID [Suspect]
     Indication: PLASMA CELL MYELOMA
     Dosage: 5 MG, 28 AND 28 D, PO
     Route: 048
     Dates: start: 20080730
  2. MULTIVITAMIN (MULTIVITAMINS) (UNKNOWN) [Concomitant]
  3. VERAMYST (FLUTICASONE FUROATE) (UNKNOWN) [Concomitant]
  4. WARFARIN (WARFARIN) (UNKNOWN) [Concomitant]
  5. WARFARIN (WARFARIN) (UNKNOWN) [Concomitant]
  6. FOLIC ACID (FOLIC ACID) (UNKNOWN) [Concomitant]
  7. GLUCOSAMIDE-CHONDROITIN (GLUCOSAMIDE W/ CHONDROITIN SULFATE) (UNKNOWN) [Concomitant]

REACTIONS (2)
  - Insomnia [None]
  - Fatigue [None]
